FAERS Safety Report 6262004-6 (Version None)
Quarter: 2009Q3

REPORT INFORMATION
  Report Type: 
  Country: None (occurrence: None)
  Receive Date: 20090709
  Receipt Date: 20090630
  Transmission Date: 20100115
  Serious: Yes (Other)
  Sender: FDA-Public Use
  Company Number: GB-ABBOTT-08P-167-0453663-00

PATIENT
  Sex: Male

DRUGS (5)
  1. LEVOBUPIVACAINE [Suspect]
     Indication: ANAESTHESIA
  2. FENTANYL [Suspect]
     Indication: GENERAL ANAESTHESIA
  3. PROPOFOL [Suspect]
     Indication: GENERAL ANAESTHESIA
  4. SEVOFLURANE [Concomitant]
     Indication: ANAESTHESIA
     Route: 055
  5. OXYGEN [Concomitant]
     Indication: ANAESTHESIA
     Dosage: NOT REPORTED

REACTIONS (1)
  - MIGRAINE WITH AURA [None]
